FAERS Safety Report 24689526 (Version 2)
Quarter: 2024Q4

REPORT INFORMATION
  Report Type: Report from Study
  Country: GB (occurrence: GB)
  Receive Date: 20241203
  Receipt Date: 20241220
  Transmission Date: 20250115
  Serious: No
  Sender: TAKEDA
  Company Number: GB-TAKEDA-2024TUS118817

PATIENT
  Sex: Female

DRUGS (2)
  1. VEDOLIZUMAB [Suspect]
     Active Substance: VEDOLIZUMAB
     Indication: Crohn^s disease
     Dosage: 108 MILLIGRAM, Q2WEEKS
  2. VEDOLIZUMAB [Suspect]
     Active Substance: VEDOLIZUMAB

REACTIONS (4)
  - Mood altered [Unknown]
  - Drug ineffective [Unknown]
  - Weight increased [Unknown]
  - Illness [Unknown]
